FAERS Safety Report 7250889-6 (Version None)
Quarter: 2011Q1

REPORT INFORMATION
  Report Type: 
  Country: None (occurrence: None)
  Receive Date: 20110128
  Receipt Date: 20110124
  Transmission Date: 20110831
  Serious: Yes (Congenital Anomaly)
  Sender: FDA-Public Use
  Company Number: A0882070A

PATIENT
  Sex: Male

DRUGS (2)
  1. ANESTHESIA FOR OPERATIVE PROCEDURE [Concomitant]
     Route: 064
     Dates: start: 20010330
  2. PAXIL [Suspect]
     Route: 064

REACTIONS (5)
  - AORTIC VALVE INCOMPETENCE [None]
  - DRUG EXPOSURE DURING PREGNANCY [None]
  - CONGENITAL AORTIC VALVE INCOMPETENCE [None]
  - CONGENITAL AORTIC STENOSIS [None]
  - CONGENITAL HEART VALVE DISORDER [None]
